FAERS Safety Report 22392374 (Version 1)
Quarter: 2023Q2

REPORT INFORMATION
  Report Type: Spontaneous
  Country: US (occurrence: None)
  Receive Date: 20230601
  Receipt Date: 20230601
  Transmission Date: 20230722
  Serious: No
  Sender: FDA-Public Use
  Company Number: 2023A121051

PATIENT
  Sex: Female

DRUGS (1)
  1. FARXIGA [Suspect]
     Active Substance: DAPAGLIFLOZIN PROPANEDIOL
     Route: 048

REACTIONS (5)
  - Skin ulcer haemorrhage [Unknown]
  - Pain [Unknown]
  - Skin burning sensation [Unknown]
  - Urinary tract infection [Unknown]
  - Impaired healing [Unknown]
